FAERS Safety Report 25390928 (Version 1)
Quarter: 2025Q2

REPORT INFORMATION
  Report Type: Spontaneous
  Country: US (occurrence: US)
  Receive Date: 20250603
  Receipt Date: 20250603
  Transmission Date: 20250717
  Serious: No
  Sender: ROCHE
  Company Number: US-ROCHE-10000299589

PATIENT
  Age: 3 Year
  Sex: Male

DRUGS (1)
  1. HEMLIBRA [Suspect]
     Active Substance: EMICIZUMAB-KXWH
     Indication: Von Willebrand^s disease
     Dosage: STRENGTH: 105MG/0.7ML
     Route: 058
     Dates: start: 202406

REACTIONS (4)
  - Epistaxis [Unknown]
  - Off label use [Unknown]
  - Ear haemorrhage [Unknown]
  - Scratch [Unknown]

NARRATIVE: CASE EVENT DATE: 20250517
